FAERS Safety Report 11950525 (Version 1)
Quarter: 2016Q1

REPORT INFORMATION
  Report Type: Spontaneous
  Country: NO (occurrence: NO)
  Receive Date: 20160126
  Receipt Date: 20160126
  Transmission Date: 20160526
  Serious: Yes (Other)
  Sender: FDA-Public Use
  Company Number: NO-EMD SERONO-E2B_80029465

PATIENT
  Sex: Female
  Weight: 63 kg

DRUGS (1)
  1. PERGOTIME [Suspect]
     Active Substance: CLOMIPHENE CITRATE
     Indication: INFERTILITY
     Dates: start: 2003

REACTIONS (3)
  - Hypothyroidism [Not Recovered/Not Resolved]
  - Endometrial cancer [Not Recovered/Not Resolved]
  - Vaginal haemorrhage [Not Recovered/Not Resolved]
